FAERS Safety Report 24226012 (Version 1)
Quarter: 2024Q3

REPORT INFORMATION
  Report Type: Spontaneous
  Country: US (occurrence: US)
  Receive Date: 20240820
  Receipt Date: 20240820
  Transmission Date: 20241016
  Serious: Yes (Other)
  Sender: AMARIN
  Company Number: US-Amarin Pharma  Inc-2024AMR000416

PATIENT
  Age: 69 Year
  Sex: Male

DRUGS (1)
  1. VASCEPA [Suspect]
     Active Substance: ICOSAPENT ETHYL
     Indication: Blood triglycerides increased
     Dosage: 1 CAPSULE TWICE DAILY
     Route: 065
     Dates: end: 20240729

REACTIONS (8)
  - Abdominal operation [Unknown]
  - Aspiration [Unknown]
  - Feeding tube user [Unknown]
  - Dysphagia [Not Recovered/Not Resolved]
  - Wrong technique in product usage process [Unknown]
  - Product dose omission issue [Unknown]
  - Off label use [Unknown]
  - Product size issue [Unknown]

NARRATIVE: CASE EVENT DATE: 20200101
